FAERS Safety Report 15800586 (Version 1)
Quarter: 2019Q1

REPORT INFORMATION
  Report Type: Spontaneous
  Country: IT (occurrence: IT)
  Receive Date: 20190108
  Receipt Date: 20190108
  Transmission Date: 20190417
  Serious: Yes (Other)
  Sender: FDA-Public Use
  Company Number: IT-AUROBINDO-AUR-APL-2018-063844

PATIENT
  Age: 35 Year
  Sex: Male

DRUGS (6)
  1. SULFAMETHOXAZOLE AND TRIMETHOPRIM [Suspect]
     Active Substance: SULFAMETHOXAZOLE\TRIMETHOPRIM
     Dosage: TRIMETHOPRIM/SULPHAMETHOXAZOLE 8/40 MG/KG/DAY
     Route: 042
     Dates: start: 20160716, end: 201701
  2. CEFTRIAXONE. [Suspect]
     Active Substance: CEFTRIAXONE
     Indication: EVIDENCE BASED TREATMENT
     Dosage: 2 GRAM, TWO TIMES A DAY
     Route: 042
     Dates: start: 2016
  3. METRONIDAZOLE. [Suspect]
     Active Substance: METRONIDAZOLE
     Indication: EVIDENCE BASED TREATMENT
     Dosage: 750 GRAM, 3 TIMES A DAY
     Route: 042
     Dates: start: 2016
  4. FLUCONAZOLE. [Suspect]
     Active Substance: FLUCONAZOLE
     Indication: ACANTHAMOEBA INFECTION
     Dosage: 400 MILLIGRAM, ONCE A DAY
     Route: 042
     Dates: start: 20160527
  5. SULFAMETHOXAZOLE AND TRIMETHOPRIM [Suspect]
     Active Substance: SULFAMETHOXAZOLE\TRIMETHOPRIM
     Indication: ACANTHAMOEBA INFECTION
     Dosage: TRIMETHOPRIM/SULPHAMETHOXAZOLE 15/75 MG/KG/DAY I.V.
     Route: 042
     Dates: start: 20160527, end: 20160716
  6. MILTEFOSINE [Suspect]
     Active Substance: MILTEFOSINE
     Indication: ACANTHAMOEBA INFECTION
     Dosage: 50 MILLIGRAM
     Route: 048
     Dates: start: 20160527, end: 20160607

REACTIONS (3)
  - Hyperkalaemia [Unknown]
  - Drug intolerance [Unknown]
  - Gastrointestinal disorder [Unknown]

NARRATIVE: CASE EVENT DATE: 2016
